FAERS Safety Report 4320642-1 (Version None)
Quarter: 2004Q1

REPORT INFORMATION
  Report Type: 
  Country: None (occurrence: None)
  Receive Date: 20040319
  Receipt Date: 20040319
  Transmission Date: 20041129
  Serious: Yes (Other)
  Sender: FDA-Public Use
  Company Number: None

PATIENT
  Age: 32 Year
  Sex: Female
  Weight: 70 kg

DRUGS (1)
  1. ZANTAC [Suspect]
     Indication: VOMITING
     Dosage: 50 IV Q 8 H (X1)
     Route: 042
     Dates: start: 20040317

REACTIONS (5)
  - DYSPNOEA [None]
  - FLUSHING [None]
  - HYPERSENSITIVITY [None]
  - THROAT IRRITATION [None]
  - URTICARIA [None]
